FAERS Safety Report 26213183 (Version 2)
Quarter: 2025Q4

REPORT INFORMATION
  Report Type: Report from Study
  Country: US (occurrence: US)
  Receive Date: 20251230
  Receipt Date: 20251231
  Transmission Date: 20260118
  Serious: No
  Sender: BAUSCH AND LOMB
  Company Number: US-BAUSCH-BH-2025-023118

PATIENT
  Age: 65 Year
  Sex: Female

DRUGS (3)
  1. XIFAXAN [Suspect]
     Active Substance: RIFAXIMIN
     Indication: Hepatic cirrhosis
     Route: 048
     Dates: start: 20251217, end: 20251229
  2. XIFAXAN [Suspect]
     Active Substance: RIFAXIMIN
     Indication: Hepatic encephalopathy
  3. LACTULOSE [Concomitant]
     Active Substance: LACTULOSE
     Indication: Hepatic encephalopathy
     Route: 065

REACTIONS (3)
  - Therapy interrupted [Unknown]
  - Insurance issue [Unknown]
  - No adverse event [Unknown]

NARRATIVE: CASE EVENT DATE: 20251229
